FAERS Safety Report 7007819-1 (Version None)
Quarter: 2010Q3

REPORT INFORMATION
  Report Type: 
  Country: None (occurrence: None)
  Receive Date: 20100922
  Receipt Date: 20100916
  Transmission Date: 20110219
  Serious: Yes (Other)
  Sender: FDA-Public Use
  Company Number: CA-MERCK-1009USA03709

PATIENT
  Age: 75 Year
  Sex: Female
  Weight: 52 kg

DRUGS (1)
  1. FOSAMAX PLUS D [Suspect]
     Route: 048

REACTIONS (5)
  - DYSPHAGIA [None]
  - MUSCULAR WEAKNESS [None]
  - OESOPHAGEAL HYPOMOTILITY [None]
  - PHARYNGEAL DISORDER [None]
  - WEIGHT DECREASED [None]
